FAERS Safety Report 4972406-3 (Version None)
Quarter: 2006Q2

REPORT INFORMATION
  Report Type: 
  Country: None (occurrence: None)
  Receive Date: 20060413
  Receipt Date: 20050113
  Transmission Date: 20061013
  Serious: Yes (Hospitalization)
  Sender: FDA-Public Use
  Company Number: US-MERCK-0501USA01845

PATIENT
  Age: 72 Year
  Sex: Female
  Weight: 90 kg

DRUGS (1)
  1. VIOXX [Suspect]
     Indication: ARTHRITIS
     Route: 048
     Dates: start: 19990901, end: 20020501

REACTIONS (26)
  - ANGIOPATHY [None]
  - BLOOD CREATININE INCREASED [None]
  - BREAST CANCER [None]
  - BREAST CANCER FEMALE [None]
  - BUNDLE BRANCH BLOCK LEFT [None]
  - CARPAL TUNNEL SYNDROME [None]
  - CHEST DISCOMFORT [None]
  - CHOLECYSTECTOMY [None]
  - CORONARY ARTERY DISEASE [None]
  - DIABETES MELLITUS NON-INSULIN-DEPENDENT [None]
  - DRUG HYPERSENSITIVITY [None]
  - GASTROOESOPHAGEAL REFLUX DISEASE [None]
  - HYPERLIPIDAEMIA [None]
  - HYPERTENSION [None]
  - HYSTERECTOMY [None]
  - KNEE ARTHROPLASTY [None]
  - MUSCLE SPASMS [None]
  - MYOCARDIAL INFARCTION [None]
  - NEUROPATHY PERIPHERAL [None]
  - PHOTOSENSITIVITY REACTION [None]
  - PRURITUS [None]
  - RECTOCELE [None]
  - SINUS BRADYCARDIA [None]
  - STASIS DERMATITIS [None]
  - URINARY TRACT INFECTION [None]
  - VERTIGO [None]
